FAERS Safety Report 6759909-6 (Version None)
Quarter: 2010Q2

REPORT INFORMATION
  Report Type: 
  Country: None (occurrence: None)
  Receive Date: 20100608
  Receipt Date: 20100524
  Transmission Date: 20101027
  Serious: Yes (Hospitalization)
  Sender: FDA-Public Use
  Company Number: AU-CELGENEUS-008-C5013-09061976

PATIENT
  Sex: Female

DRUGS (14)
  1. CC-5013 [Suspect]
     Indication: MULTIPLE MYELOMA
     Route: 048
     Dates: start: 20090612
  2. DEXAMETHASONE [Suspect]
     Indication: MULTIPLE MYELOMA
     Route: 060
     Dates: start: 20090612
  3. ATORVASTATIN [Concomitant]
     Route: 048
     Dates: start: 19991201
  4. ALLOPURINOL [Concomitant]
     Indication: PROPHYLAXIS
     Route: 048
     Dates: start: 20090521, end: 20090718
  5. VENLAFAXINE [Concomitant]
     Indication: DEPRESSION
     Route: 048
     Dates: start: 20060101
  6. PERINDOPRIL [Concomitant]
     Indication: HYPERTENSION
     Route: 048
     Dates: start: 20060101
  7. ALPRAZOLAM [Concomitant]
     Indication: ANXIETY
     Route: 048
     Dates: start: 20000101
  8. ASPIRIN SOLUABLE [Concomitant]
     Route: 048
     Dates: start: 20090613
  9. OXYCODONE [Concomitant]
     Indication: BACK PAIN
     Route: 048
     Dates: start: 20090624, end: 20090703
  10. OXYCONTIN [Concomitant]
     Indication: BACK PAIN
     Route: 048
     Dates: start: 20090703, end: 20090725
  11. PAMIDRONATE DISODIUM [Concomitant]
     Indication: PROPHYLAXIS
     Dosage: 60 OR 90MG
     Route: 051
     Dates: start: 20090612
  12. CANDESARTAN CILEXETIL [Concomitant]
     Indication: HYPERTENSION
     Route: 048
     Dates: start: 20100316
  13. COLCHICINE [Concomitant]
     Indication: GOUT
     Route: 048
     Dates: start: 20090601, end: 20090711
  14. COLCHICINE [Concomitant]
     Route: 048
     Dates: start: 20100222, end: 20100301

REACTIONS (1)
  - HAEMARTHROSIS [None]
